FAERS Safety Report 24989476 (Version 2)
Quarter: 2025Q1

REPORT INFORMATION
  Report Type: Spontaneous
  Country: US (occurrence: US)
  Receive Date: 20250220
  Receipt Date: 20250221
  Transmission Date: 20250409
  Serious: No
  Sender: Haleon PLC
  Company Number: US-HALEON-2228824

PATIENT

DRUGS (1)
  1. ALLI [Suspect]
     Active Substance: ORLISTAT
     Indication: Product used for unknown indication

REACTIONS (5)
  - Vomiting [Unknown]
  - Muscular weakness [Unknown]
  - Illness [Unknown]
  - Dizziness [Unknown]
  - Diarrhoea [Unknown]
